FAERS Safety Report 19348826 (Version 1)
Quarter: 2021Q2

REPORT INFORMATION
  Report Type: Spontaneous
  Country: US (occurrence: US)
  Receive Date: 20210529
  Receipt Date: 20210529
  Transmission Date: 20210717
  Serious: Yes (Other)
  Sender: FDA-Public Use
  Company Number: None

PATIENT
  Age: 58 Year
  Sex: Female
  Weight: 99 kg

DRUGS (3)
  1. VITAMIN D3 [Concomitant]
     Active Substance: CHOLECALCIFEROL
  2. QVAR REDIHALER [Suspect]
     Active Substance: BECLOMETHASONE DIPROPIONATE
     Indication: PULMONARY CONGESTION
     Dosage: ?          QUANTITY:1 PUFF(S);?
     Route: 048
     Dates: start: 20210526, end: 20210528
  3. INHALER [Concomitant]
     Active Substance: UNSPECIFIED INGREDIENT

REACTIONS (9)
  - Abdominal discomfort [None]
  - Malaise [None]
  - Insomnia [None]
  - Oropharyngeal pain [None]
  - Jaw disorder [None]
  - Saliva altered [None]
  - Diarrhoea [None]
  - Dry throat [None]
  - Tooth disorder [None]

NARRATIVE: CASE EVENT DATE: 20210528
